FAERS Safety Report 6631727-9 (Version None)
Quarter: 2010Q1

REPORT INFORMATION
  Report Type: 
  Country: None (occurrence: None)
  Receive Date: 20100312
  Receipt Date: 20100301
  Transmission Date: 20100710
  Serious: Yes (Other)
  Sender: FDA-Public Use
  Company Number: US-PFIZER INC-2009310566

PATIENT
  Sex: Male
  Weight: 75.283 kg

DRUGS (7)
  1. GEODON [Suspect]
     Indication: BIPOLAR I DISORDER
     Dosage: 60 MG, 2X/DAY
     Dates: start: 20090101
  2. LORAZEPAM [Concomitant]
     Indication: ANXIETY
     Dosage: 1 MG, AS NEEDED
  3. LORAZEPAM [Concomitant]
     Indication: INSOMNIA
  4. ADDERALL 30 [Concomitant]
     Dosage: 20 MG, 2X/DAY
  5. TOPAMAX [Concomitant]
     Dosage: 125 MG, 1X/DAY
  6. LAMICTAL [Concomitant]
     Dosage: 200 MG, 2X/DAY
  7. LITHIUM [Concomitant]
     Dosage: 450 MG, 2X/DAY

REACTIONS (7)
  - DRUG ADMINISTRATION ERROR [None]
  - DRUG INTOLERANCE [None]
  - FEELING ABNORMAL [None]
  - GAIT DISTURBANCE [None]
  - HYPOAESTHESIA [None]
  - INCOHERENT [None]
  - TREMOR [None]
